FAERS Safety Report 15702794 (Version 1)
Quarter: 2018Q4

REPORT INFORMATION
  Report Type: Spontaneous
  Country: CA (occurrence: CA)
  Receive Date: 20181210
  Receipt Date: 20181210
  Transmission Date: 20190205
  Serious: Yes (Other)
  Sender: FDA-Public Use
  Company Number: CA-ABBVIE-18K-028-2581916-00

PATIENT
  Age: 25 Year
  Sex: Female

DRUGS (18)
  1. ENBREL [Suspect]
     Active Substance: ETANERCEPT
     Indication: PSORIATIC ARTHROPATHY
  2. METHOTREXATE. [Suspect]
     Active Substance: METHOTREXATE
     Indication: DRUG INEFFECTIVE
  3. PREDNISONE. [Suspect]
     Active Substance: PREDNISONE
     Indication: DRUG INEFFECTIVE
     Route: 048
  4. HUMIRA [Suspect]
     Active Substance: ADALIMUMAB
     Indication: PRODUCT USED FOR UNKNOWN INDICATION
     Route: 058
  5. ACTEMRA [Suspect]
     Active Substance: TOCILIZUMAB
     Indication: PRODUCT USED FOR UNKNOWN INDICATION
     Route: 042
  6. REMICADE [Suspect]
     Active Substance: INFLIXIMAB
     Route: 042
  7. REMICADE [Suspect]
     Active Substance: INFLIXIMAB
     Route: 042
  8. XELJANZ [Concomitant]
     Active Substance: TOFACITINIB CITRATE
     Indication: PRODUCT USED FOR UNKNOWN INDICATION
  9. REMICADE [Suspect]
     Active Substance: INFLIXIMAB
     Route: 042
  10. DICLOFENAC [Suspect]
     Active Substance: DICLOFENAC
     Route: 065
  11. REMICADE [Suspect]
     Active Substance: INFLIXIMAB
     Route: 042
  12. DICLOFENAC [Suspect]
     Active Substance: DICLOFENAC
     Indication: PRODUCT USED FOR UNKNOWN INDICATION
     Route: 065
  13. SIMPONI [Suspect]
     Active Substance: GOLIMUMAB
     Indication: PRODUCT USED FOR UNKNOWN INDICATION
     Route: 058
  14. SULFASALAZINE. [Suspect]
     Active Substance: SULFASALAZINE
     Indication: DRUG INEFFECTIVE
  15. SULFASALAZINE. [Suspect]
     Active Substance: SULFASALAZINE
     Indication: RHEUMATOID ARTHRITIS
     Route: 048
  16. ENBREL [Suspect]
     Active Substance: ETANERCEPT
     Indication: RHEUMATOID ARTHRITIS
     Route: 058
  17. METHOTREXATE. [Suspect]
     Active Substance: METHOTREXATE
     Indication: RHEUMATOID ARTHRITIS
     Route: 048
  18. REMICADE [Suspect]
     Active Substance: INFLIXIMAB
     Indication: PRODUCT USED FOR UNKNOWN INDICATION
     Route: 042

REACTIONS (5)
  - Drug resistance [Unknown]
  - Drug effect decreased [Unknown]
  - Herpes zoster [Unknown]
  - Rheumatoid arthritis [Unknown]
  - Pneumonitis [Unknown]
